FAERS Safety Report 23160046 (Version 1)
Quarter: 2023Q4

REPORT INFORMATION
  Report Type: Spontaneous
  Country: None (occurrence: FR)
  Receive Date: 20231108
  Receipt Date: 20231108
  Transmission Date: 20240110
  Serious: Yes (Life-Threatening, Hospitalization)
  Sender: FDA-Public Use
  Company Number: FR-B.Braun Medical Inc.-2147997

PATIENT
  Age: 55 Year
  Sex: Male
  Weight: 49 kg

DRUGS (9)
  1. ACETAMINOPHEN [Suspect]
     Active Substance: ACETAMINOPHEN
     Indication: Pain
  2. NICOTINE [Suspect]
     Active Substance: NICOTINE
  3. MOVICOL [Suspect]
     Active Substance: POLYETHYLENE GLYCOL 3350\POTASSIUM CHLORIDE\SODIUM BICARBONATE\SODIUM CHLORIDE
  4. LIBTAYO [Suspect]
     Active Substance: CEMIPLIMAB-RWLC
  5. OXYCODONE. [Suspect]
     Active Substance: OXYCODONE HYDROCHLORIDE
  6. ACUPAN [Suspect]
     Active Substance: NEFOPAM HYDROCHLORIDE
  7. PAMIDRONATE DISODIUM [Suspect]
     Active Substance: PAMIDRONATE DISODIUM
  8. LANSOPRAZOLE [Suspect]
     Active Substance: LANSOPRAZOLE
  9. PREGABALIN [Suspect]
     Active Substance: PREGABALIN

REACTIONS (1)
  - Ischaemic stroke [None]
